FAERS Safety Report 23573620 (Version 2)
Quarter: 2024Q3

REPORT INFORMATION
  Report Type: Spontaneous
  Country: US (occurrence: US)
  Receive Date: 20240228
  Receipt Date: 20240814
  Transmission Date: 20241016
  Serious: No
  Sender: BLUEPRINT MEDICINES
  Company Number: US-Blueprint Medicines Corporation-2512

PATIENT
  Sex: Male

DRUGS (2)
  1. AYVAKIT [Suspect]
     Active Substance: AVAPRITINIB
     Indication: Systemic mastocytosis
     Route: 065
     Dates: start: 20220608
  2. AYVAKIT [Suspect]
     Active Substance: AVAPRITINIB
     Indication: Mastocytosis
     Route: 048
     Dates: start: 20220608

REACTIONS (3)
  - Loss of personal independence in daily activities [Unknown]
  - Hypersensitivity [Unknown]
  - Pain [Unknown]
